FAERS Safety Report 21996007 (Version 1)
Quarter: 2023Q1

REPORT INFORMATION
  Report Type: Spontaneous
  Country: DE (occurrence: DE)
  Receive Date: 20230215
  Receipt Date: 20230215
  Transmission Date: 20230417
  Serious: Yes (Other)
  Sender: FDA-Public Use
  Company Number: DE-TAKEDA-2022TUS084947

PATIENT
  Age: 21 Year
  Sex: Male

DRUGS (2)
  1. ENTYVIO [Suspect]
     Active Substance: VEDOLIZUMAB
     Indication: Colitis ulcerative
     Dosage: UNK
     Route: 058
  2. ZEPOSIA [Concomitant]
     Active Substance: OZANIMOD HYDROCHLORIDE
     Dosage: UNK

REACTIONS (5)
  - Colitis ulcerative [Unknown]
  - Abnormal faeces [Unknown]
  - Asthenia [Unknown]
  - Fatigue [Unknown]
  - Therapeutic product effect decreased [Unknown]
